FAERS Safety Report 19083292 (Version 1)
Quarter: 2021Q2

REPORT INFORMATION
  Report Type: Spontaneous
  Country: US (occurrence: US)
  Receive Date: 20210401
  Receipt Date: 20210401
  Transmission Date: 20210717
  Serious: Yes (Death)
  Sender: FDA-Public Use
  Company Number: None

PATIENT
  Age: 68 Year
  Sex: Male
  Weight: 113.85 kg

DRUGS (1)
  1. EPCLUSA [Suspect]
     Active Substance: SOFOSBUVIR\VELPATASVIR
     Indication: HEPATITIS C
     Route: 048
     Dates: start: 20210211, end: 20210316

REACTIONS (4)
  - Hepatic encephalopathy [None]
  - Alcohol withdrawal syndrome [None]
  - Sepsis [None]
  - Acute hepatitis C [None]

NARRATIVE: CASE EVENT DATE: 20210317
